FAERS Safety Report 21924091 (Version 2)
Quarter: 2023Q1

REPORT INFORMATION
  Report Type: Spontaneous
  Country: JP (occurrence: JP)
  Receive Date: 20230130
  Receipt Date: 20230227
  Transmission Date: 20230418
  Serious: Yes (Death)
  Sender: FDA-Public Use
  Company Number: JP-KERYX BIOPHARMACEUTICALS INC.-JP-AKEB-23-000150

PATIENT

DRUGS (2)
  1. FERRIC CITRATE ANHYDROUS [Suspect]
     Active Substance: FERRIC CITRATE ANHYDROUS
     Indication: Product used for unknown indication
     Dosage: UNK
     Route: 048
  2. ENARODUSTAT [Suspect]
     Active Substance: ENARODUSTAT
     Indication: Product used for unknown indication
     Dosage: UNK
     Route: 048

REACTIONS (1)
  - Death [Fatal]
